FAERS Safety Report 8877723 (Version 2)
Quarter: 2013Q1

REPORT INFORMATION
  Report Type: Report from Study
  Country: US (occurrence: US)
  Receive Date: 20121024
  Receipt Date: 20130103
  Transmission Date: 20140127
  Serious: Yes (Hospitalization)
  Sender: FDA-Public Use
  Company Number: US-ASTELLAS-2012US010344

PATIENT
  Age: 1 Year
  Sex: Female
  Weight: 12 kg

DRUGS (6)
  1. TACROLIMUS OINTMENT [Suspect]
     Indication: DERMATITIS ATOPIC
     Dosage: 0.03 %, BID
     Route: 061
     Dates: start: 20110201
  2. CETIRIZINE [Concomitant]
     Indication: UPPER RESPIRATORY TRACT INFECTION
     Dosage: 1/2 TSP, UID/QD
     Route: 048
     Dates: start: 20111017
  3. TRIMETHOPRIM [Concomitant]
     Indication: PRODUCT USED FOR UNKNOWN INDICATION
     Dosage: UNK UNK, UNKNOWN/D
     Route: 065
  4. SULFAMETHOXAZOLE [Concomitant]
     Indication: UPPER RESPIRATORY TRACT INFECTION
     Dosage: 1 TSP Q12 HOURS
     Route: 048
     Dates: start: 20111017
  5. SUPRAX                             /00497602/ [Concomitant]
     Indication: BRONCHIOLITIS
     Dosage: 1 TSP , UID/QD
     Dates: start: 20111007
  6. XOPENEX [Concomitant]
     Indication: BRONCHITIS
     Dosage: 3 ML, TID
     Route: 048
     Dates: start: 20111007

REACTIONS (2)
  - Off label use [Unknown]
  - Subcutaneous abscess [Recovered/Resolved]
